FAERS Safety Report 4484560-0 (Version None)
Quarter: 2004Q3

REPORT INFORMATION
  Report Type: 
  Country: None (occurrence: None)
  Receive Date: 20040921
  Receipt Date: 20040106
  Transmission Date: 20050211
  Serious: Yes (Hospitalization)
  Sender: FDA-Public Use
  Company Number: 163-20785-04010146(0)

PATIENT
  Age: 49 Year
  Sex: Female

DRUGS (7)
  1. THALOMID [Suspect]
     Indication: DRUG USE FOR UNKNOWN INDICATION
     Dosage: SEE IMAGE
     Route: 048
  2. THALOMID [Suspect]
     Indication: MULTIPLE MYELOMA
     Dosage: SEE IMAGE
     Route: 048
  3. THALOMID [Suspect]
     Indication: DRUG USE FOR UNKNOWN INDICATION
     Dosage: SEE IMAGE
     Route: 048
     Dates: start: 20031212
  4. THALOMID [Suspect]
     Indication: MULTIPLE MYELOMA
     Dosage: SEE IMAGE
     Route: 048
     Dates: start: 20031212
  5. SYNTHROID [Concomitant]
  6. VALIUM [Concomitant]
  7. PAMIDRONATE DISODIUM [Concomitant]

REACTIONS (4)
  - BLOOD CREATININE INCREASED [None]
  - MICTURITION URGENCY [None]
  - POLLAKIURIA [None]
  - RENAL FAILURE [None]
